FAERS Safety Report 7530434-8 (Version None)
Quarter: 2011Q2

REPORT INFORMATION
  Report Type: 
  Country: None (occurrence: None)
  Receive Date: 20110607
  Receipt Date: 20110531
  Transmission Date: 20111010
  Serious: Yes (Hospitalization)
  Sender: FDA-Public Use
  Company Number: US-B.I. PHARMACEUTICALS,INC./RIDGEFIELD-2011-BP-12845BP

PATIENT
  Sex: Female

DRUGS (5)
  1. TEKTURNA [Concomitant]
     Indication: HYPERTENSION
     Route: 048
  2. PRADAXA [Suspect]
     Indication: ATRIAL FIBRILLATION
     Dosage: 300 MG
     Route: 048
     Dates: start: 20110427, end: 20110501
  3. LISINOPRIL [Concomitant]
     Indication: HYPERTENSION
     Route: 048
  4. ATENOLOL [Concomitant]
     Indication: HYPERTENSION
     Route: 048
  5. CLARITIN [Concomitant]
     Indication: HYPERSENSITIVITY

REACTIONS (9)
  - BLOOD PRESSURE INCREASED [None]
  - TREMOR [None]
  - HEADACHE [None]
  - SOMNOLENCE [None]
  - FATIGUE [None]
  - URINARY TRACT INFECTION [None]
  - FLUSHING [None]
  - DISTURBANCE IN ATTENTION [None]
  - PYREXIA [None]
